FAERS Safety Report 7422886-9 (Version None)
Quarter: 2011Q2

REPORT INFORMATION
  Report Type: 
  Country: None (occurrence: None)
  Receive Date: 20110411
  Receipt Date: 20110330
  Transmission Date: 20111010
  Serious: Yes (Hospitalization)
  Sender: FDA-Public Use
  Company Number: 2008-01049

PATIENT
  Age: 63 Year
  Sex: Female
  Weight: 42 kg

DRUGS (18)
  1. DICLOFENAC SODIUM [Suspect]
     Indication: RHEUMATOID ARTHRITIS
     Dosage: 75 MG, ORAL
     Route: 048
     Dates: end: 20070419
  2. MAGNESIUM OXIDE (MAGNESIUM OXIDE) [Concomitant]
  3. OMEPRAZOLE [Concomitant]
  4. LEPETAN (BUPRENORPHINE HYDROCHLORIDE) [Concomitant]
  5. LAXOBERON (SODIUM PICOSULFATE) [Concomitant]
  6. VELCADE [Suspect]
     Indication: MULTIPLE MYELOMA
     Dosage: 1.7 MG, INTRAVENOUS; 1.3 , INTRAVENOUS
     Route: 042
     Dates: start: 20070320, end: 20070413
  7. VELCADE [Suspect]
     Indication: MULTIPLE MYELOMA
     Dosage: 1.7 MG, INTRAVENOUS; 1.3 , INTRAVENOUS
     Route: 042
     Dates: start: 20100119, end: 20100209
  8. ALENDRONATE SODIUM [Concomitant]
  9. LECICARBON (SODIUM BICARBONATE, LECITHIN, SODIUM PHOSPHATE MONOBASIC ( [Concomitant]
  10. LENDORM [Concomitant]
  11. ITRIZOLE (ITRACONAZOLE) [Concomitant]
  12. CYTOTEC [Concomitant]
  13. COTRIM [Concomitant]
  14. DECADRON [Suspect]
     Indication: MULTIPLE MYELOMA
     Dosage: 20 MG, ORAL; 10 MG, ORAL
     Route: 048
     Dates: start: 20070320, end: 20070331
  15. DECADRON [Suspect]
     Indication: MULTIPLE MYELOMA
     Dosage: 20 MG, ORAL; 10 MG, ORAL
     Route: 048
     Dates: start: 20070410, end: 20070414
  16. DEXAMETHASONE [Suspect]
     Indication: MULTIPLE MYELOMA
     Dosage: 10 MG, ORAL
     Route: 048
     Dates: start: 20070410, end: 20070414
  17. MUCOSTA (REBAMIPIDE) [Concomitant]
  18. GLYSENNID [Concomitant]

REACTIONS (22)
  - WHITE BLOOD CELL COUNT DECREASED [None]
  - BLOOD ALBUMIN DECREASED [None]
  - BLOOD LACTATE DEHYDROGENASE INCREASED [None]
  - BLOOD POTASSIUM INCREASED [None]
  - BLOOD CALCIUM DECREASED [None]
  - C-REACTIVE PROTEIN INCREASED [None]
  - ALANINE AMINOTRANSFERASE INCREASED [None]
  - HYPOAESTHESIA [None]
  - ANAEMIA [None]
  - LARGE INTESTINAL ULCER HAEMORRHAGE [None]
  - CONSTIPATION [None]
  - PLATELET COUNT DECREASED [None]
  - PROTEIN TOTAL DECREASED [None]
  - PYREXIA [None]
  - HERPES ZOSTER [None]
  - BLOOD SODIUM DECREASED [None]
  - LYMPHOCYTE COUNT DECREASED [None]
  - BLOOD UREA INCREASED [None]
  - IMMOBILE [None]
  - BACTERIAL INFECTION [None]
  - ABDOMINAL DISTENSION [None]
  - BACK PAIN [None]
